FAERS Safety Report 9138583 (Version 2)
Quarter: 2013Q2

REPORT INFORMATION
  Report Type: Report from Study
  Country: AT (occurrence: AT)
  Receive Date: 20130305
  Receipt Date: 20130507
  Transmission Date: 20140414
  Serious: Yes (Death, Hospitalization)
  Sender: FDA-Public Use
  Company Number: AT-BAYER-2013-026417

PATIENT
  Age: 49 Year
  Sex: Male

DRUGS (2)
  1. SORAFENIB (RAF KINASE INHIBITOR) [Suspect]
     Indication: HEPATOCELLULAR CARCINOMA
     Dosage: 800 MG TOTAL DAILY DOSE
     Route: 048
     Dates: start: 20121009, end: 20130110
  2. EVEROLIMUS [Suspect]
     Indication: HEPATOCELLULAR CARCINOMA
     Dosage: 5 MG TOTAL DAILY DOSE
     Route: 048
     Dates: start: 20121109, end: 20130110

REACTIONS (4)
  - Hepatic function abnormal [Fatal]
  - Ascites [None]
  - Fatigue [None]
  - Infection [None]
